FAERS Safety Report 9323027 (Version 3)
Quarter: 2013Q4

REPORT INFORMATION
  Report Type: Spontaneous
  Country: US (occurrence: US)
  Receive Date: 20130603
  Receipt Date: 20131118
  Transmission Date: 20140711
  Serious: Yes (Hospitalization)
  Sender: FDA-Public Use
  Company Number: US-B.I. PHARMACEUTICALS,INC./RIDGEFIELD-2013-BI-14903BP

PATIENT
  Age: 75 Year
  Sex: Male
  Weight: 80.29 kg

DRUGS (5)
  1. PRADAXA [Suspect]
     Indication: ANTICOAGULANT THERAPY
     Dates: start: 20110526, end: 20120623
  2. AVODART [Concomitant]
     Dates: start: 2008
  3. NIFEDICAL [Concomitant]
     Dates: start: 2002
  4. PRILOSEC [Concomitant]
     Dates: start: 2002
  5. PROPRANOLOL [Concomitant]
     Dates: start: 2002

REACTIONS (1)
  - Haematoma [Unknown]
